FAERS Safety Report 19111585 (Version 1)
Quarter: 2021Q2

REPORT INFORMATION
  Report Type: Spontaneous
  Country: US (occurrence: US)
  Receive Date: 20210408
  Receipt Date: 20210408
  Transmission Date: 20210717
  Serious: Yes (Death)
  Sender: FDA-Public Use
  Company Number: None

PATIENT
  Age: 72 Year
  Sex: Female

DRUGS (9)
  1. UBRELVY [Concomitant]
     Active Substance: UBROGEPANT
  2. MORPHINE SUL [Concomitant]
     Active Substance: MORPHINE SULFATE
  3. OXYCODONE [Concomitant]
     Active Substance: OXYCODONE
  4. TRAZODONE [Concomitant]
     Active Substance: TRAZODONE HYDROCHLORIDE
  5. ENBREL [Suspect]
     Active Substance: ETANERCEPT
     Indication: RHEUMATOID ARTHRITIS
     Dosage: ?          OTHER FREQUENCY:EVERY WEEK;?
     Route: 058
     Dates: start: 20180604
  6. AMMONIUM LAC [Concomitant]
  7. PREDNISONE. [Concomitant]
     Active Substance: PREDNISONE
  8. TRIAMCINOLON [Concomitant]
  9. DOXYCYCL HYC [Concomitant]

REACTIONS (1)
  - Death [None]
